FAERS Safety Report 6218043-4 (Version None)
Quarter: 2009Q2

REPORT INFORMATION
  Report Type: 
  Country: None (occurrence: None)
  Receive Date: 20090601
  Receipt Date: 20090414
  Transmission Date: 20091009
  Serious: Yes (Other)
  Sender: FDA-Public Use
  Company Number: 191818USA

PATIENT

DRUGS (1)
  1. ROCURONIUM BROMIDE [Suspect]
     Dosage: INTRAVENOUS (NOT OTHERWISE SPECIFIED)
     Route: 042

REACTIONS (1)
  - ANAPHYLACTIC REACTION [None]
